FAERS Safety Report 7842728-7 (Version None)
Quarter: 2011Q4

REPORT INFORMATION
  Report Type: 
  Country: None (occurrence: None)
  Receive Date: 20111025
  Receipt Date: 20111018
  Transmission Date: 20120403
  Serious: Yes (Other)
  Sender: FDA-Public Use
  Company Number: US-PFIZER INC-2011251074

PATIENT
  Sex: Male
  Weight: 90.703 kg

DRUGS (22)
  1. SIMVASTATIN [Concomitant]
     Indication: CARDIAC DISORDER
     Dosage: 10 MG DAILY AT BEDTIME
  2. MONOPRIL [Concomitant]
     Indication: CARDIAC DISORDER
     Dosage: 10 MG DAILY
  3. PULMICORT [Concomitant]
     Indication: DYSPNOEA
     Dosage: 0.5 MG, DAILY
  4. LASIX [Concomitant]
     Indication: DIURETIC THERAPY
  5. POTASSIUM CHLORIDE [Concomitant]
     Indication: CARDIAC DISORDER
     Dosage: 10 MG DAILY
  6. NITROGLYCERIN [Concomitant]
     Indication: CARDIAC DISORDER
     Dosage: AS NEEDED
  7. CALCIUM [Concomitant]
     Indication: OSTEOPOROSIS
     Dosage: 600 MG, 2X/DAY
  8. DILANTIN [Suspect]
     Dosage: 50 MG
  9. SINGULAIR [Concomitant]
     Indication: CARDIAC DISORDER
     Dosage: 10 MG DAILY AT BED TIME
  10. PERFOROMIST [Concomitant]
     Indication: DYSPNOEA
     Dosage: 20 UG, 2X/DAY
  11. DILANTIN [Suspect]
     Indication: CONVULSION
     Dosage: 100 MG, 3X/DAY
     Route: 048
     Dates: start: 19860101, end: 20111001
  12. XANAX [Concomitant]
     Indication: ANXIETY
     Dosage: 0.5 MG, 3X/DAY
  13. ACETYLSALICYLIC ACID [Concomitant]
     Dosage: 325 MG DAILY
  14. ALBUTEROL [Concomitant]
     Indication: DYSPNOEA
     Dosage: 2.5 MG, AS NEEDED
  15. PERFOROMIST [Concomitant]
     Indication: LUNG DISORDER
  16. LASIX [Concomitant]
     Indication: CARDIAC DISORDER
     Dosage: 40 MG DAILY
  17. OXYGEN [Concomitant]
     Indication: CARDIAC DISORDER
     Dosage: 6 LITERS 24HRS
  18. NITROGLYCERIN [Concomitant]
     Indication: CARDIAC DISORDER
     Dosage: 0.1 MG, 2X/DAY
  19. IRON [Concomitant]
     Dosage: UNK
  20. DILANTIN [Suspect]
     Indication: GUN SHOT WOUND
     Dosage: 300 MG DAILY
     Route: 048
     Dates: start: 19860101, end: 20111001
  21. VALIUM [Concomitant]
     Indication: NEURALGIA
     Dosage: 5 MG DAILY
  22. MULTI-VITAMINS [Concomitant]
     Dosage: UNK

REACTIONS (4)
  - ANTICONVULSANT DRUG LEVEL INCREASED [None]
  - LUNG DISORDER [None]
  - CARDIAC DISORDER [None]
  - GAIT DISTURBANCE [None]
